FAERS Safety Report 9553915 (Version 1)
Quarter: 2013Q3

REPORT INFORMATION
  Report Type: Spontaneous
  Country: US (occurrence: None)
  Receive Date: 20130913
  Receipt Date: 20130913
  Transmission Date: 20140515
  Serious: No
  Sender: FDA-Public Use
  Company Number: 1000045824

PATIENT
  Sex: Female

DRUGS (1)
  1. DALIRESP [Suspect]
     Indication: OBSTRUCTIVE AIRWAYS DISORDER
     Dosage: 500 MCG (500 MCG, 1 IN 1 D), ORAL
     Route: 048

REACTIONS (2)
  - Oral mucosal blistering [None]
  - Oropharyngeal pain [None]
